FAERS Safety Report 15163923 (Version 1)
Quarter: 2018Q3

REPORT INFORMATION
  Report Type: Spontaneous
  Country: GB (occurrence: GB)
  Receive Date: 20180719
  Receipt Date: 20180719
  Transmission Date: 20181010
  Serious: Yes (Other)
  Sender: FDA-Public Use
  Company Number: GB-TEVA-2018-GB-929023

PATIENT
  Age: 22 Year
  Sex: Female

DRUGS (1)
  1. DOXYCYCLINE. [Suspect]
     Active Substance: DOXYCYCLINE
     Indication: CHLAMYDIA TEST POSITIVE
     Dosage: 200 MILLIGRAM DAILY;
     Route: 048
     Dates: start: 20180611, end: 20180612

REACTIONS (2)
  - Panic attack [Unknown]
  - Suicidal ideation [Unknown]
